FAERS Safety Report 13010554 (Version 2)
Quarter: 2017Q1

REPORT INFORMATION
  Report Type: Report from Study
  Country: US (occurrence: US)
  Receive Date: 20161208
  Receipt Date: 20170101
  Transmission Date: 20170428
  Serious: Yes (Hospitalization)
  Sender: FDA-Public Use
  Company Number: US-MALLINCKRODT-T201605407

PATIENT
  Age: 58 Year
  Sex: Male
  Weight: 86 kg

DRUGS (6)
  1. BACLOFEN. [Concomitant]
     Active Substance: BACLOFEN
     Indication: MUSCLE SPASTICITY
     Dosage: 20 MG QD
     Route: 048
     Dates: start: 20150120
  2. OXYBUTYNIN [Concomitant]
     Active Substance: OXYBUTYNIN
     Indication: NEUROGENIC BLADDER
     Dosage: 5 MG TID
     Route: 048
     Dates: start: 20120614
  3. CIALIS [Concomitant]
     Active Substance: TADALAFIL
     Indication: ERECTILE DYSFUNCTION
     Dosage: 20 MG PRN
     Route: 048
     Dates: start: 20130319
  4. AVONEX [Concomitant]
     Active Substance: INTERFERON BETA-1A
     Indication: MULTIPLE SCLEROSIS
     Dosage: 30 MG Q WEEK
     Route: 030
     Dates: start: 20150716
  5. REPOSITORY CORTICOTROPIN INJECTION [Suspect]
     Active Substance: CORTICOTROPIN
     Indication: MULTIPLE SCLEROSIS RELAPSE
     Dosage: 80U/1ML ONCE DAILY FOR 14 DAYS
     Route: 058
     Dates: start: 20160415, end: 20160428
  6. BACTRIM DS [Concomitant]
     Active Substance: SULFAMETHOXAZOLE\TRIMETHOPRIM
     Indication: NEUROGENIC BLADDER
     Dosage: 800/160 QD
     Route: 048
     Dates: start: 20150620

REACTIONS (1)
  - Urinary tract infection [Recovered/Resolved]

NARRATIVE: CASE EVENT DATE: 20161020
